FAERS Safety Report 5775942-5 (Version None)
Quarter: 2008Q2

REPORT INFORMATION
  Report Type: 
  Country: None (occurrence: None)
  Receive Date: 20080613
  Receipt Date: 20080604
  Transmission Date: 20081010
  Serious: Yes (Other)
  Sender: FDA-Public Use
  Company Number: 2008SP011013

PATIENT
  Age: 74 Year
  Sex: Female
  Weight: 77.1115 kg

DRUGS (4)
  1. CLARITIN [Suspect]
     Indication: HYPERSENSITIVITY
     Dosage: 10 MG;ONCE;PO
     Route: 048
     Dates: start: 20080421
  2. CLARITIN [Suspect]
     Indication: LACRIMATION INCREASED
     Dosage: 10 MG;ONCE;PO
     Route: 048
     Dates: start: 20080421
  3. CLARITIN [Suspect]
     Indication: SNEEZING
     Dosage: 10 MG;ONCE;PO
     Route: 048
     Dates: start: 20080421
  4. ALLOPURINOL [Concomitant]

REACTIONS (2)
  - DRUG HYPERSENSITIVITY [None]
  - PHARYNGEAL OEDEMA [None]
